FAERS Safety Report 13752710 (Version 1)
Quarter: 2017Q3

REPORT INFORMATION
  Report Type: Spontaneous
  Country: US (occurrence: US)
  Receive Date: 20170713
  Receipt Date: 20170713
  Transmission Date: 20171127
  Serious: Yes (Other)
  Sender: FDA-Public Use
  Company Number: None

PATIENT
  Age: 71 Year
  Sex: Female

DRUGS (3)
  1. PREMPRO [Concomitant]
     Active Substance: ESTROGENS, CONJUGATED\MEDROXYPROGESTERONE ACETATE
  2. NATURE-THROID [Concomitant]
     Active Substance: THYROID, PORCINE
  3. VALSARTAN. [Suspect]
     Active Substance: VALSARTAN
     Indication: HYPERTENSION
     Dosage: ?          OTHER DOSE:MG;?
     Route: 048
     Dates: start: 20170604, end: 20170616

REACTIONS (5)
  - Product odour abnormal [None]
  - Palpitations [None]
  - Product substitution issue [None]
  - Dyspnoea [None]
  - Product taste abnormal [None]

NARRATIVE: CASE EVENT DATE: 20170616
